FAERS Safety Report 5209789-5 (Version None)
Quarter: 2006Q4

REPORT INFORMATION
  Report Type: 
  Country: None (occurrence: None)
  Receive Date: 20061107
  Receipt Date: 20060908
  Transmission Date: 20070319
  Serious: No
  Sender: FDA-Public Use
  Company Number: IPX00008

PATIENT
  Age: 8 Year
  Sex: Male
  Weight: 18 kg

DRUGS (1)
  1. IPLEX [Suspect]
     Dosage: 9 MG/DAILY/SC
     Route: 058
     Dates: start: 20060908

REACTIONS (1)
  - MEDICATION ERROR [None]
